FAERS Safety Report 6377772 (Version 2)
Quarter: 2013Q3

REPORT INFORMATION
  Report Type: Spontaneous
  Country: US (occurrence: US)
  Receive Date: 20070618
  Receipt Date: 20130731
  Transmission Date: 20140515
  Serious: Yes (Other)
  Sender: FDA-Public Use
  Company Number: PHEH2006US06621

PATIENT
  Age: 65 Year
  Sex: Male

DRUGS (12)
  1. GLEEVEC [Suspect]
     Indication: CHRONIC MYELOID LEUKAEMIA
     Dosage: 400 MG, QD
     Route: 048
     Dates: start: 20040524, end: 2005
  2. GLEEVEC [Suspect]
     Dosage: 600 MG, QD
     Route: 048
     Dates: start: 2005, end: 20060518
  3. GLEEVEC [Suspect]
     Dosage: 500 MG, QOD
     Route: 048
     Dates: start: 20060518
  4. GLEEVEC [Suspect]
     Dosage: 600 MG, QOD
     Route: 048
  5. GLEEVEC [Suspect]
     Dosage: 400 MG, QD IN FIRST WEEK
     Route: 048
  6. GLEEVEC [Suspect]
     Dosage: 500 MG, QD IN SECOND WEEK
     Route: 048
     Dates: end: 20130727
  7. DOXAZOSIN [Concomitant]
     Dosage: UNK UKN, UNK
     Route: 048
  8. CARVEDILOL [Concomitant]
     Dosage: 3.125 MG, BID
  9. SUPER ASPRIN [Concomitant]
  10. CARDURA [Concomitant]
     Indication: BLOOD PRESSURE
     Dosage: 4 MG, UNK
     Route: 048
  11. ASA [Concomitant]
     Dosage: 81 MG, QD
  12. INFED [Concomitant]
     Dosage: 200 IU, UNK

REACTIONS (8)
  - Cardiomegaly [Unknown]
  - Gastrointestinal haemorrhage [Unknown]
  - Anaemia [Not Recovered/Not Resolved]
  - Haemoglobin decreased [Not Recovered/Not Resolved]
  - Nausea [Unknown]
  - Diarrhoea [Unknown]
  - Full blood count decreased [Recovering/Resolving]
  - Pain in extremity [Unknown]
